FAERS Safety Report 9781781 (Version 5)
Quarter: 2014Q1

REPORT INFORMATION
  Report Type: Spontaneous
  Country: JP (occurrence: JP)
  Receive Date: 20131225
  Receipt Date: 20140321
  Transmission Date: 20141002
  Serious: Yes (Hospitalization, Other)
  Sender: FDA-Public Use
  Company Number: JP-ROCHE-1325199

PATIENT
  Age: 53 Year
  Sex: Male
  Weight: 89 kg

DRUGS (5)
  1. LUCENTIS [Suspect]
     Indication: RETINAL VEIN OCCLUSION
     Route: 050
     Dates: start: 20131028
  2. MICARDIS [Concomitant]
  3. ARTIST [Concomitant]
  4. NORVASC [Concomitant]
  5. PRAZAXA [Concomitant]

REACTIONS (4)
  - Renal infarct [Recovered/Resolved with Sequelae]
  - Embolism [Recovered/Resolved with Sequelae]
  - Renal necrosis [Recovered/Resolved with Sequelae]
  - Abdominal pain lower [Unknown]
